FAERS Safety Report 7725412-X (Version None)
Quarter: 2011Q3

REPORT INFORMATION
  Report Type: 
  Country: None (occurrence: None)
  Receive Date: 20110902
  Receipt Date: 20110831
  Transmission Date: 20111222
  Serious: No
  Sender: FDA-Public Use
  Company Number: US-PFIZER INC-2011203592

PATIENT
  Sex: Male
  Weight: 99.7 kg

DRUGS (2)
  1. ADVIL LIQUI-GELS [Suspect]
     Indication: HEADACHE
  2. ADVIL LIQUI-GELS [Suspect]
     Indication: PAIN IN EXTREMITY
     Dosage: UNK, 2X/DAY
     Route: 048
     Dates: start: 20110801, end: 20110830

REACTIONS (1)
  - DRUG INEFFECTIVE [None]
